FAERS Safety Report 8818890 (Version 4)
Quarter: 2013Q2

REPORT INFORMATION
  Report Type: Report from Study
  Country: US (occurrence: US)
  Receive Date: 20121002
  Receipt Date: 20130419
  Transmission Date: 20140414
  Serious: Yes (Death, Hospitalization)
  Sender: FDA-Public Use
  Company Number: US-SANOFI-AVENTIS-2012SA071289

PATIENT
  Age: 67 Year
  Sex: Male
  Weight: 111.57 kg

DRUGS (16)
  1. DOCETAXEL [Suspect]
     Indication: NON-SMALL CELL LUNG CANCER STAGE IV
     Route: 042
     Dates: start: 20120720, end: 20120720
  2. DOCETAXEL [Suspect]
     Indication: NON-SMALL CELL LUNG CANCER STAGE IV
     Route: 042
     Dates: start: 20120831, end: 20120831
  3. INVESTIGATIONAL DRUG [Suspect]
     Indication: NON-SMALL CELL LUNG CANCER STAGE IV
     Dosage: IV OVER 60 MINUTES
     Route: 042
     Dates: start: 20120720
  4. INVESTIGATIONAL DRUG [Suspect]
     Indication: NON-SMALL CELL LUNG CANCER STAGE IV
     Route: 042
     Dates: end: 20120831
  5. BENZONATATE [Concomitant]
     Dates: start: 20120706, end: 20120911
  6. IPRATROPIUM BROMIDE/SALBUTAMOL SULFATE [Concomitant]
     Dates: start: 2010, end: 20120911
  7. DEXAMETHASONE [Concomitant]
     Dates: start: 20120706, end: 20120911
  8. LIDOCAINE/PRILOCAINE [Concomitant]
     Dates: start: 20120706, end: 20120911
  9. LORAZEPAM [Concomitant]
     Dates: start: 20120817, end: 20120911
  10. ONDANSETRON HYDROCHLORIDE [Concomitant]
     Dates: start: 20120727, end: 20120911
  11. PROCHLORPERAZINE MALEATE [Concomitant]
     Dates: start: 20120706, end: 20120911
  12. TUSSIONEX [Concomitant]
     Dates: start: 20120506, end: 20120911
  13. PREDNISONE [Concomitant]
     Dates: start: 20120727, end: 20120911
  14. ALPRAZOLAM [Concomitant]
     Dates: start: 20120211, end: 20120816
  15. DIPHENHYDRAMINE HYDROCHLORIDE [Concomitant]
     Dates: start: 20120831, end: 20120831
  16. ALOXI [Concomitant]
     Dates: start: 20120831, end: 20120831

REACTIONS (2)
  - Respiratory failure [Fatal]
  - Pericardial effusion [Recovered/Resolved with Sequelae]
